FAERS Safety Report 9186800 (Version 1)
Quarter: 2012Q4

REPORT INFORMATION
  Report Type: 
  Country: US (occurrence: US)
  Receive Date: 20121102
  Receipt Date: 20121102
  Transmission Date: 20130627
  Serious: No
  Sender: FDA-Public Use
  Company Number: US-ASTELLAS-2012US003275

PATIENT
  Age: 31 Year
  Sex: Female

DRUGS (14)
  1. MYCAMINE [Suspect]
     Indication: SYSTEMIC CANDIDA
     Dosage: 100 mg, UID/QD
     Route: 042
  2. MYCAMINE [Suspect]
     Dosage: 50 mg, UID/QD
     Route: 042
     Dates: end: 201203
  3. ANTIFUNGALS [Concomitant]
     Indication: PRODUCT USED FOR UNKNOWN INDICATION
     Dosage: UNK
     Route: 048
  4. ANTIBIOTICS [Concomitant]
     Indication: PRODUCT USED FOR UNKNOWN INDICATION
     Dosage: UNK
     Route: 048
  5. NYSTATIN [Concomitant]
     Indication: CANDIDIASIS
     Dosage: 1000000 U, bid
     Route: 065
  6. DIFLUCAN [Concomitant]
     Indication: LYME DISEASE
     Dosage: UNK
     Route: 065
  7. PROBIOTICS [Concomitant]
     Indication: LYME DISEASE
     Dosage: UNK
     Route: 065
  8. NIZORAL [Concomitant]
     Indication: CANDIDIASIS
     Dosage: UNK
     Route: 065
  9. VFEND [Concomitant]
     Indication: PRODUCT USED FOR UNKNOWN INDICATION
     Dosage: UNK
     Route: 065
  10. DOXYCYCLINE [Concomitant]
     Indication: PRODUCT USED FOR UNKNOWN INDICATION
     Dosage: UNK
     Route: 065
  11. ROCEPHIN [Concomitant]
     Indication: PRODUCT USED FOR UNKNOWN INDICATION
     Dosage: UNK
     Route: 042
  12. TINDAMAX [Concomitant]
     Indication: PRODUCT USED FOR UNKNOWN INDICATION
     Dosage: UNK
     Route: 065
  13. AMOXICILLIN [Concomitant]
     Indication: PRODUCT USED FOR UNKNOWN INDICATION
     Dosage: UNK
     Route: 065
  14. BIAXIN [Concomitant]
     Indication: PRODUCT USED FOR UNKNOWN INDICATION
     Dosage: UNK
     Route: 065

REACTIONS (2)
  - Drug ineffective [Unknown]
  - Systemic candida [Unknown]
